FAERS Safety Report 25462605 (Version 1)
Quarter: 2025Q2

REPORT INFORMATION
  Report Type: Spontaneous
  Country: US (occurrence: US)
  Receive Date: 20250620
  Receipt Date: 20250620
  Transmission Date: 20250717
  Serious: No
  Sender: PFIZER
  Company Number: US-PFIZER INC-PV202500072925

PATIENT
  Age: 52 Year
  Sex: Female

DRUGS (2)
  1. XELJANZ [Suspect]
     Active Substance: TOFACITINIB CITRATE
  2. PREDNISONE [Concomitant]
     Active Substance: PREDNISONE

REACTIONS (5)
  - Drug ineffective [Unknown]
  - Myalgia [Unknown]
  - Pain [Unknown]
  - Musculoskeletal stiffness [Unknown]
  - Pain in extremity [Unknown]
